FAERS Safety Report 19284036 (Version 1)
Quarter: 2021Q2

REPORT INFORMATION
  Report Type: Spontaneous
  Country: US (occurrence: US)
  Receive Date: 20210521
  Receipt Date: 20210521
  Transmission Date: 20210717
  Serious: Yes (Other)
  Sender: FDA-Public Use
  Company Number: None

PATIENT
  Age: 76 Year
  Sex: Male

DRUGS (18)
  1. ATORVASTATIN [Concomitant]
     Active Substance: ATORVASTATIN
  2. KLOR?CON [Concomitant]
     Active Substance: POTASSIUM CHLORIDE
  3. CARVEDILOL. [Concomitant]
     Active Substance: CARVEDILOL
  4. ESOMEPRA MAG [Concomitant]
  5. PREDNISONE. [Concomitant]
     Active Substance: PREDNISONE
  6. FUROSEMIDE. [Concomitant]
     Active Substance: FUROSEMIDE
  7. ASPIRIN CHW [Concomitant]
  8. NITROGLYCERN [Concomitant]
  9. BRILINTA [Concomitant]
     Active Substance: TICAGRELOR
  10. AMIODARONE [Concomitant]
     Active Substance: AMIODARONE
  11. FEROSUL [Concomitant]
     Active Substance: FERROUS SULFATE
  12. VITAMIN C [Concomitant]
     Active Substance: ASCORBIC ACID
  13. POT CHLORIDE [Concomitant]
     Active Substance: POTASSIUM CHLORIDE
  14. PAIN RELIEVR [Concomitant]
  15. ENBREL [Suspect]
     Active Substance: ETANERCEPT
     Indication: PRODUCT USED FOR UNKNOWN INDICATION
     Dosage: ?          OTHER FREQUENCY:WEEKLY;?
     Route: 058
     Dates: start: 20180222
  16. BUMETANIDE. [Concomitant]
     Active Substance: BUMETANIDE
  17. POT CL MICRO ER [Concomitant]
  18. METOPROL TAR [Concomitant]

REACTIONS (2)
  - Myocardial infarction [None]
  - Therapy interrupted [None]

NARRATIVE: CASE EVENT DATE: 20210312
